FAERS Safety Report 6042617-7 (Version None)
Quarter: 2009Q1

REPORT INFORMATION
  Report Type: 
  Country: None (occurrence: None)
  Receive Date: 20090119
  Receipt Date: 20090109
  Transmission Date: 20090719
  Serious: Yes (Hospitalization)
  Sender: FDA-Public Use
  Company Number: ES-BAYER-200910815GPV

PATIENT
  Age: 73 Year
  Sex: Male

DRUGS (1)
  1. SORAFENIB [Suspect]
     Indication: HEPATIC CIRRHOSIS
     Dosage: TOTAL DAILY DOSE: 800 MG
     Route: 048

REACTIONS (1)
  - HEPATITIS ACUTE [None]
